FAERS Safety Report 7872575-1 (Version None)
Quarter: 2011Q4

REPORT INFORMATION
  Report Type: 
  Country: None (occurrence: None)
  Receive Date: 20111030
  Receipt Date: 20110428
  Transmission Date: 20120403
  Serious: No
  Sender: FDA-Public Use
  Company Number: US-AMGEN-USASP2011022125

PATIENT
  Sex: Female

DRUGS (2)
  1. SIMPONI [Concomitant]
  2. ENBREL [Suspect]
     Indication: PSORIASIS
     Dosage: 50 MG, QWK
     Dates: start: 20050101

REACTIONS (3)
  - FATIGUE [None]
  - PNEUMONIA [None]
  - ABDOMINAL DISCOMFORT [None]
